FAERS Safety Report 22059791 (Version 1)
Quarter: 2023Q1

REPORT INFORMATION
  Report Type: Spontaneous
  Country: US (occurrence: None)
  Receive Date: 20230302
  Receipt Date: 20230302
  Transmission Date: 20230418
  Serious: No
  Sender: FDA-Public Use
  Company Number: None

PATIENT
  Age: 86 Year
  Sex: Female
  Weight: 54 kg

DRUGS (3)
  1. ERYTHROMYCIN [Suspect]
     Active Substance: ERYTHROMYCIN
     Indication: Tooth infection
     Dosage: 24 TABLETS EVERY 12 HOURS ORAL
     Route: 048
     Dates: start: 20230227, end: 20230301
  2. CARVEDILOL [Concomitant]
     Active Substance: CARVEDILOL
  3. RAMIPRIL [Concomitant]
     Active Substance: RAMIPRIL

REACTIONS (3)
  - Vomiting [None]
  - Retching [None]
  - Abdominal pain upper [None]

NARRATIVE: CASE EVENT DATE: 20230301
